FAERS Safety Report 15450208 (Version 3)
Quarter: 2018Q4

REPORT INFORMATION
  Report Type: Spontaneous
  Country: US (occurrence: US)
  Receive Date: 20181001
  Receipt Date: 20181029
  Transmission Date: 20190204
  Serious: No
  Sender: FDA-Public Use
  Company Number: US-PFIZER INC-2018393395

PATIENT
  Age: 77 Year
  Sex: Male

DRUGS (11)
  1. MELOXICAM. [Concomitant]
     Active Substance: MELOXICAM
     Dosage: 15 MG, UNK
     Dates: start: 20160101
  2. OMEPRAZOLE. [Concomitant]
     Active Substance: OMEPRAZOLE
     Dosage: 40 MG, UNK
     Dates: start: 20160101
  3. GABAPENTIN. [Suspect]
     Active Substance: GABAPENTIN
     Indication: NEUROPATHY PERIPHERAL
     Dosage: 300 MG, 1X/DAY (1 TIME ONLY)
     Dates: start: 20170926
  4. CIALIS [Concomitant]
     Active Substance: TADALAFIL
     Dosage: 5 MG, UNK
     Dates: start: 20160101
  5. LYRICA [Concomitant]
     Active Substance: PREGABALIN
     Dosage: 25 MG, UNK
     Dates: start: 20160101, end: 20181001
  6. TAMSULOSIN [Concomitant]
     Active Substance: TAMSULOSIN
     Dosage: 0.4 MG, UNK
     Dates: start: 20160101
  7. LISINOPRIL. [Concomitant]
     Active Substance: LISINOPRIL
     Dosage: 40 MG, UNK
     Dates: start: 20160101
  8. LOVASTATIN. [Concomitant]
     Active Substance: LOVASTATIN
     Dosage: 10 MG, UNK
     Dates: start: 20160101
  9. LORATADINE. [Concomitant]
     Active Substance: LORATADINE
     Dosage: 10 MG, UNK
     Dates: start: 20160101
  10. FINASTERIDE. [Concomitant]
     Active Substance: FINASTERIDE
     Dosage: 5 MG, UNK
     Dates: start: 20160101
  11. HYDROCHLOROTHIAZIDE. [Concomitant]
     Active Substance: HYDROCHLOROTHIAZIDE
     Dosage: 12.5 MG, UNK
     Dates: start: 20160101

REACTIONS (3)
  - Loss of personal independence in daily activities [Unknown]
  - Dysstasia [Unknown]
  - Dizziness [Unknown]

NARRATIVE: CASE EVENT DATE: 20170926
